FAERS Safety Report 21053636 (Version 2)
Quarter: 2022Q3

REPORT INFORMATION
  Report Type: Spontaneous
  Country: JP (occurrence: JP)
  Receive Date: 20220707
  Receipt Date: 20220812
  Transmission Date: 20221027
  Serious: Yes (Other)
  Sender: FDA-Public Use
  Company Number: JP-TAKEDA-2022TJP061751

PATIENT

DRUGS (2)
  1. ZEJULA [Suspect]
     Active Substance: NIRAPARIB
     Indication: Ovarian cancer recurrent
     Dosage: 200 MG, QD
     Route: 048
     Dates: start: 2021
  2. ZEJULA [Suspect]
     Active Substance: NIRAPARIB
     Dosage: 100 MG
     Route: 048

REACTIONS (3)
  - Ovarian cancer recurrent [Unknown]
  - Platelet count decreased [Recovering/Resolving]
  - Nausea [Recovering/Resolving]

NARRATIVE: CASE EVENT DATE: 20210101
